FAERS Safety Report 7388489 (Version 4)
Quarter: 2013Q1

REPORT INFORMATION
  Report Type: Report from Study
  Country: IT (occurrence: IT)
  Receive Date: 20100514
  Receipt Date: 20130319
  Transmission Date: 20140127
  Serious: Yes (Hospitalization, Other)
  Sender: FDA-Public Use
  Company Number: IT-JNJFOC-20100501732

PATIENT
  Age: 48 Year
  Sex: Male
  Weight: 78 kg

DRUGS (14)
  1. REMICADE [Suspect]
     Indication: COLITIS ULCERATIVE
     Route: 042
     Dates: start: 20080621
  2. REMICADE [Suspect]
     Indication: COLITIS ULCERATIVE
     Route: 042
     Dates: start: 20080408
  3. ADALIMUMAB [Suspect]
     Indication: COLITIS ULCERATIVE
     Route: 058
     Dates: start: 20090324
  4. ADALIMUMAB [Suspect]
     Indication: COLITIS ULCERATIVE
     Route: 058
     Dates: start: 20090407
  5. ADALIMUMAB [Suspect]
     Indication: COLITIS ULCERATIVE
     Route: 058
     Dates: start: 20090716, end: 20090716
  6. ADALIMUMAB [Suspect]
     Indication: COLITIS ULCERATIVE
     Route: 058
     Dates: start: 20090616, end: 20090616
  7. ADALIMUMAB [Suspect]
     Indication: COLITIS ULCERATIVE
     Route: 058
     Dates: start: 20090421
  8. ADALIMUMAB [Suspect]
     Indication: PSORIATIC ARTHROPATHY
     Route: 058
     Dates: start: 20090616, end: 20090616
  9. ADALIMUMAB [Suspect]
     Indication: PSORIATIC ARTHROPATHY
     Route: 058
     Dates: start: 20090716, end: 20090716
  10. ADALIMUMAB [Suspect]
     Indication: PSORIATIC ARTHROPATHY
     Route: 058
     Dates: start: 20090421
  11. ADALIMUMAB [Suspect]
     Indication: PSORIATIC ARTHROPATHY
     Route: 058
     Dates: start: 20090324
  12. ADALIMUMAB [Suspect]
     Indication: PSORIATIC ARTHROPATHY
     Route: 058
     Dates: start: 20090407
  13. PANTOPRAZOLE [Concomitant]
     Indication: GASTRITIS
     Route: 048
     Dates: start: 200801
  14. SALAZOPYRIN [Concomitant]
     Indication: COLITIS ULCERATIVE
     Route: 048
     Dates: start: 2008

REACTIONS (1)
  - Dermatitis bullous [Recovered/Resolved]
